FAERS Safety Report 12977578 (Version 2)
Quarter: 2016Q4

REPORT INFORMATION
  Report Type: Spontaneous
  Country: DE (occurrence: DE)
  Receive Date: 20161128
  Receipt Date: 20161227
  Transmission Date: 20170207
  Serious: Yes (Hospitalization, Other)
  Sender: FDA-Public Use
  Company Number: DE-009507513-1611DEU012568

PATIENT
  Age: 75 Year
  Sex: Female
  Weight: 70 kg

DRUGS (1)
  1. KEYTRUDA [Suspect]
     Active Substance: PEMBROLIZUMAB
     Indication: METASTATIC MALIGNANT MELANOMA
     Dosage: 2 MG/KG BODY WEIGHT Q3W, CYCLE 6
     Route: 042
     Dates: start: 201510, end: 201602

REACTIONS (2)
  - Cardiomyopathy [Recovered/Resolved with Sequelae]
  - Pneumonitis [Recovered/Resolved]

NARRATIVE: CASE EVENT DATE: 201601
